FAERS Safety Report 5875749-4 (Version None)
Quarter: 2008Q3

REPORT INFORMATION
  Report Type: 
  Country: None (occurrence: None)
  Receive Date: 20080905
  Receipt Date: 20080829
  Transmission Date: 20090109
  Serious: Yes (Life-Threatening)
  Sender: FDA-Public Use
  Company Number: 08GB001084

PATIENT
  Age: 38 Year
  Sex: Female
  Weight: 58 kg

DRUGS (2)
  1. PAROXETINE HCL [Suspect]
     Indication: PANIC ATTACK
     Dosage: ORAL
     Route: 048
     Dates: start: 19990601, end: 20080601
  2. DIAZEPAM [Concomitant]

REACTIONS (2)
  - DRUG WITHDRAWAL SYNDROME [None]
  - INTENTIONAL SELF-INJURY [None]
